FAERS Safety Report 5325112-X (Version None)
Quarter: 2007Q2

REPORT INFORMATION
  Report Type: 
  Country: None (occurrence: None)
  Receive Date: 20070511
  Receipt Date: 20070511
  Transmission Date: 20071010
  Serious: No
  Sender: FDA-Public Use
  Company Number: None

PATIENT
  Age: 44 Year
  Sex: Female

DRUGS (1)
  1. NASONEX [Suspect]
     Indication: HYPERSENSITIVITY
     Dosage: 2 SPRAYS EACH NOSTRIL   DAILY  NASAL
     Route: 045
     Dates: start: 20060616, end: 20060617

REACTIONS (4)
  - CONDITION AGGRAVATED [None]
  - HYPERSENSITIVITY [None]
  - MOVEMENT DISORDER [None]
  - ROAD TRAFFIC ACCIDENT [None]
